FAERS Safety Report 8557551-8 (Version None)
Quarter: 2012Q3

REPORT INFORMATION
  Report Type: 
  Country: None (occurrence: None)
  Receive Date: 20120726
  Receipt Date: 20120726
  Transmission Date: 20120928
  Serious: Yes (Other)
  Sender: FDA-Public Use
  Company Number: None

PATIENT
  Sex: Female
  Weight: 49.8957 kg

DRUGS (2)
  1. ESCITALOPRAM [Suspect]
     Dosage: 20 MG ONCE Q HS PO
     Route: 048
     Dates: start: 20120512
  2. ESCITALOPRAM [Suspect]
     Dosage: 10 MG ONCE Q AFTERNOON PO
     Route: 048
     Dates: start: 20120512

REACTIONS (6)
  - INSOMNIA [None]
  - ANXIETY [None]
  - AFFECTIVE DISORDER [None]
  - IRRITABILITY [None]
  - PANIC ATTACK [None]
  - PRODUCT SUBSTITUTION ISSUE [None]
